FAERS Safety Report 6557293-4 (Version None)
Quarter: 2010Q1

REPORT INFORMATION
  Report Type: 
  Country: None (occurrence: None)
  Receive Date: 20100129
  Receipt Date: 20100118
  Transmission Date: 20100710
  Serious: Yes (Life-Threatening, Hospitalization, Other)
  Sender: FDA-Public Use
  Company Number: GB-RANBAXY-2010RR-30503

PATIENT
  Sex: Female

DRUGS (4)
  1. COPAXONE [Suspect]
     Indication: MULTIPLE SCLEROSIS
     Dosage: 20 MG, QD
     Route: 058
     Dates: start: 20091020, end: 20091222
  2. GABAPENTIN [Concomitant]
     Indication: NEURALGIA
  3. TRAMADOL [Concomitant]
     Indication: NEURALGIA
  4. PREGABALIN [Concomitant]
     Indication: NEURALGIA

REACTIONS (6)
  - ABNORMAL DREAMS [None]
  - HALLUCINATION [None]
  - MOOD ALTERED [None]
  - NEURALGIA [None]
  - OVERDOSE [None]
  - SUICIDAL IDEATION [None]
